FAERS Safety Report 19693993 (Version 4)
Quarter: 2021Q4

REPORT INFORMATION
  Report Type: Spontaneous
  Country: JP (occurrence: JP)
  Receive Date: 20210812
  Receipt Date: 20211229
  Transmission Date: 20220303
  Serious: Yes (Hospitalization, Other)
  Sender: FDA-Public Use
  Company Number: JP-SA-2021SA263389

PATIENT
  Age: 17 Month
  Sex: Male

DRUGS (17)
  1. SABRIL [Suspect]
     Active Substance: VIGABATRIN
     Indication: Infantile spasms
     Dosage: DAILY DOSE: 57 MG/KG, BID (650 MG)
     Route: 048
     Dates: start: 20210602, end: 20210725
  2. SABRIL [Suspect]
     Active Substance: VIGABATRIN
     Dosage: DAILY DOSE: 25 MG/KG, BID (250 MG)
     Route: 048
     Dates: start: 20201118, end: 20201209
  3. SABRIL [Suspect]
     Active Substance: VIGABATRIN
     Dosage: DAILY DOSE: 50 MG/KG, BID (500 MG)
     Route: 048
     Dates: start: 20201210, end: 20210114
  4. SABRIL [Suspect]
     Active Substance: VIGABATRIN
     Dosage: DAILY DOSE: 81MG/KG, BID (800MG)
     Route: 048
     Dates: start: 20210115, end: 20210512
  5. SABRIL [Suspect]
     Active Substance: VIGABATRIN
     Dosage: DAILY DOSE: 62MG/KG, BID (700MG)
     Route: 048
     Dates: start: 20210513, end: 20210601
  6. SABRIL [Suspect]
     Active Substance: VIGABATRIN
     Dosage: DAILY DOSE: 53 MG/KG, BID (600MG)
     Route: 048
     Dates: start: 20210726, end: 20210902
  7. SABRIL [Suspect]
     Active Substance: VIGABATRIN
     Dosage: DAILY DOSE: 48 MG/KG, BID (600MG)
     Route: 048
     Dates: start: 20210903, end: 20210930
  8. SABRIL [Suspect]
     Active Substance: VIGABATRIN
     Dosage: DAILY DOSE: 44 MG/KG, BID (600MG)
     Route: 048
     Dates: start: 20211001
  9. VALPROATE SODIUM [Concomitant]
     Active Substance: VALPROATE SODIUM
     Indication: Product used for unknown indication
     Dosage: DAILY DOSE: 350 MG
     Route: 048
     Dates: end: 20210114
  10. VALPROATE SODIUM [Concomitant]
     Active Substance: VALPROATE SODIUM
     Dosage: DAILY DOSE: 250 MG
     Route: 048
     Dates: start: 20210115, end: 20210216
  11. VALPROATE SODIUM [Concomitant]
     Active Substance: VALPROATE SODIUM
     Dosage: DAILY DOSE: 150 MG
     Route: 048
     Dates: start: 20210217, end: 20210303
  12. VALPROATE SODIUM [Concomitant]
     Active Substance: VALPROATE SODIUM
     Dosage: DAILY DOSE: 250 MG
     Route: 048
     Dates: start: 20210304, end: 20210323
  13. VALPROATE SODIUM [Concomitant]
     Active Substance: VALPROATE SODIUM
     Dosage: DAILY DOSE: 300 MG
     Route: 048
     Dates: start: 20210324
  14. LEVOCARNITINE HYDROCHLORIDE [Concomitant]
     Active Substance: LEVOCARNITINE HYDROCHLORIDE
     Indication: Product used for unknown indication
     Dosage: DAILY DOSE: 300 MG
     Route: 048
     Dates: start: 20201102
  15. GLYCERIN [Concomitant]
     Active Substance: GLYCERIN
     Indication: Product used for unknown indication
     Dosage: DAILY DOSE: 30 ML, PRN
     Route: 054
  16. TRICLOFOS SODIUM [Concomitant]
     Active Substance: TRICLOFOS SODIUM
     Indication: Product used for unknown indication
     Dosage: DAILY DOSE: 3 TO 5 ML, PRN
     Route: 048
  17. HYALURONATE SODIUM [Concomitant]
     Active Substance: HYALURONATE SODIUM
     Indication: Product used for unknown indication
     Dosage: PRN
     Route: 047
     Dates: start: 20210719, end: 20210729

REACTIONS (2)
  - Oxygen saturation decreased [Recovered/Resolved]
  - Pneumonia [Recovered/Resolved]

NARRATIVE: CASE EVENT DATE: 20210719
